FAERS Safety Report 20636845 (Version 1)
Quarter: 2022Q1

REPORT INFORMATION
  Report Type: Spontaneous
  Country: US (occurrence: None)
  Receive Date: 20220324
  Receipt Date: 20220324
  Transmission Date: 20220423
  Serious: Yes (Death, Hospitalization)
  Sender: FDA-Public Use
  Company Number: None

PATIENT
  Age: 56 Year
  Sex: Male
  Weight: 175.5 kg

DRUGS (17)
  1. VECTIBIX [Suspect]
     Active Substance: PANITUMUMAB
     Indication: Colorectal cancer stage IV
     Dosage: FREQUENCY : TWICE A WEEK;?
     Route: 042
     Dates: start: 20210112, end: 20211101
  2. PANTOPRAZOLE [Concomitant]
     Active Substance: PANTOPRAZOLE
  3. EMLA [Concomitant]
     Active Substance: LIDOCAINE\PRILOCAINE
  4. COMPAZINE [Concomitant]
     Active Substance: PROCHLORPERAZINE MALEATE
  5. PROCTOFOAM [Concomitant]
     Active Substance: PRAMOXINE HYDROCHLORIDE
  6. PHENTERMINE [Concomitant]
     Active Substance: PHENTERMINE
  7. GABAPENTIN [Concomitant]
     Active Substance: GABAPENTIN
  8. TOPIRAMATE [Concomitant]
     Active Substance: TOPIRAMATE
  9. CLEOCIN [Concomitant]
     Active Substance: CLINDAMYCIN PHOSPHATE
  10. VITAMIN D3 [Concomitant]
     Active Substance: CHOLECALCIFEROL
  11. VARUBI [Concomitant]
     Active Substance: ROLAPITANT
  12. FLUOXETINE [Concomitant]
     Active Substance: FLUOXETINE HYDROCHLORIDE
  13. TRIAMCINOLONE ACETONIDE [Concomitant]
     Active Substance: TRIAMCINOLONE ACETONIDE
  14. HYDROCORTISONE [Concomitant]
     Active Substance: HYDROCORTISONE
  15. MUPIROCIN [Concomitant]
     Active Substance: MUPIROCIN
  16. CIPRO [Concomitant]
     Active Substance: CIPROFLOXACIN HYDROCHLORIDE
  17. CELEBREX [Concomitant]
     Active Substance: CELECOXIB

REACTIONS (10)
  - Skin reaction [None]
  - Cough [None]
  - Eye disorder [None]
  - Inflammatory marker increased [None]
  - Lung opacity [None]
  - Condition aggravated [None]
  - Pneumonitis [None]
  - Oxygen saturation decreased [None]
  - Computerised tomogram abnormal [None]
  - Adverse drug reaction [None]

NARRATIVE: CASE EVENT DATE: 20211111
